FAERS Safety Report 10675148 (Version 1)
Quarter: 2014Q4

REPORT INFORMATION
  Report Type: Spontaneous
  Country: US (occurrence: US)
  Receive Date: 20141224
  Receipt Date: 20141224
  Transmission Date: 20150529
  Serious: No
  Sender: FDA-Public Use
  Company Number: US-GLAXOSMITHKLINE-US2014038578

PATIENT
  Sex: Female

DRUGS (5)
  1. SORIATANE [Suspect]
     Active Substance: ACITRETIN
     Indication: SKIN CANCER
     Dosage: 25 MG, U
     Route: 065
     Dates: start: 201208
  2. CAPTOPRIL. [Concomitant]
     Active Substance: CAPTOPRIL
  3. HYDROCHLOROTHIAZIDE. [Concomitant]
     Active Substance: HYDROCHLOROTHIAZIDE
  4. GABAPENTIN. [Concomitant]
     Active Substance: GABAPENTIN
  5. SORIATANE [Suspect]
     Active Substance: ACITRETIN
     Dosage: 25 MG, EVERY THIRD DAY
     Route: 065
     Dates: start: 201403

REACTIONS (1)
  - Platelet count decreased [Not Recovered/Not Resolved]
